FAERS Safety Report 5503619-X (Version None)
Quarter: 2007Q4

REPORT INFORMATION
  Report Type: 
  Country: None (occurrence: None)
  Receive Date: 20071030
  Receipt Date: 20071016
  Transmission Date: 20080405
  Serious: Yes (Death)
  Sender: FDA-Public Use
  Company Number: ENT 2007-0185

PATIENT
  Age: 70 Year
  Sex: Male

DRUGS (4)
  1. COMTAN [Suspect]
     Indication: PARKINSON'S DISEASE
     Dosage: 1400 MG ORAL
     Route: 048
     Dates: start: 20020424, end: 20071001
  2. MADOPAR [Suspect]
     Indication: PARKINSON'S DISEASE
     Dosage: 1025 MG ORAL
     Route: 048
     Dates: start: 20011113, end: 20071002
  3. APOFIN [Suspect]
     Indication: PARKINSON'S DISEASE
     Dosage: 28.8 MG SUBCUTANEOUS
     Route: 058
     Dates: start: 20070123, end: 20071001
  4. LEXOTAN [Concomitant]

REACTIONS (1)
  - COMPLETED SUICIDE [None]
